FAERS Safety Report 9215981 (Version 3)
Quarter: 2013Q2

REPORT INFORMATION
  Report Type: Spontaneous
  Country: GB (occurrence: GB)
  Receive Date: 20130408
  Receipt Date: 20130509
  Transmission Date: 20140414
  Serious: Yes (Hospitalization, Other)
  Sender: FDA-Public Use
  Company Number: GB-JNJFOC-20130402169

PATIENT
  Age: 28 Year
  Sex: Female
  Weight: 70.9 kg

DRUGS (2)
  1. STELARA [Suspect]
     Indication: PSORIASIS
     Route: 058
     Dates: start: 201204
  2. STELARA [Suspect]
     Indication: PSORIASIS
     Route: 058
     Dates: start: 20130110

REACTIONS (4)
  - Hypertension [Recovering/Resolving]
  - Weight increased [Unknown]
  - Headache [Unknown]
  - Psoriasis [Recovered/Resolved]
